FAERS Safety Report 12196146 (Version 2)
Quarter: 2016Q2

REPORT INFORMATION
  Report Type: Spontaneous
  Country: US (occurrence: US)
  Receive Date: 20160321
  Receipt Date: 20160422
  Transmission Date: 20160815
  Serious: No
  Sender: FDA-Public Use
  Company Number: US-TOLMAR INC.-1049382

PATIENT
  Sex: Female

DRUGS (1)
  1. KETOCONAZOLE SHAMPOO, 2% [Suspect]
     Active Substance: KETOCONAZOLE
     Indication: SEBORRHOEIC DERMATITIS
     Route: 061
     Dates: start: 2016, end: 2016

REACTIONS (1)
  - Drug ineffective [Recovered/Resolved]
